FAERS Safety Report 5130286-X (Version None)
Quarter: 2006Q4

REPORT INFORMATION
  Report Type: 
  Country: None (occurrence: None)
  Receive Date: 20061013
  Receipt Date: 20060926
  Transmission Date: 20070319
  Serious: Yes (Hospitalization)
  Sender: FDA-Public Use
  Company Number: US200609006826

PATIENT
  Age: 67 Year
  Sex: Male

DRUGS (3)
  1. HUMALOG [Suspect]
     Indication: DIABETES MELLITUS
     Dates: start: 20040101
  2. LANTUS [Concomitant]
  3. HUMALOG PEN (HUMALOG PEN) [Concomitant]

REACTIONS (1)
  - NEUROPATHY [None]
